FAERS Safety Report 4734925-4 (Version None)
Quarter: 2005Q3

REPORT INFORMATION
  Report Type: 
  Country: None (occurrence: None)
  Receive Date: 20050804
  Receipt Date: 20050728
  Transmission Date: 20060218
  Serious: Yes (Hospitalization)
  Sender: FDA-Public Use
  Company Number: 200512588FR

PATIENT
  Age: 69 Year
  Sex: Female

DRUGS (7)
  1. RIFATER [Suspect]
     Route: 048
     Dates: start: 20050518, end: 20050609
  2. FLECAINIDE ACETATE [Concomitant]
  3. SECTRAL [Concomitant]
  4. ALLOPURINOL [Concomitant]
  5. PERSANTINE [Concomitant]
  6. LORAZEPAM [Concomitant]
  7. SINTROM [Concomitant]

REACTIONS (5)
  - ANOREXIA [None]
  - DEPRESSION [None]
  - GENERAL PHYSICAL HEALTH DETERIORATION [None]
  - HEPATITIS CHOLESTATIC [None]
  - RENAL FAILURE ACUTE [None]
